FAERS Safety Report 25484621 (Version 1)
Quarter: 2025Q2

REPORT INFORMATION
  Report Type: Spontaneous
  Country: US (occurrence: None)
  Receive Date: 20250626
  Receipt Date: 20250626
  Transmission Date: 20250716
  Serious: Yes (unspecified)
  Sender: FDA-CTU
  Company Number: None

PATIENT
  Age: 73 Year
  Sex: Female
  Weight: 60 kg

DRUGS (1)
  1. CEFTRIAXONE SODIUM [Suspect]
     Active Substance: CEFTRIAXONE SODIUM
     Indication: Pneumonia
     Route: 042
     Dates: start: 20250529, end: 20250529

REACTIONS (8)
  - Hypersensitivity [None]
  - Urticaria [None]
  - Wheezing [None]
  - Dyspnoea [None]
  - Respiratory failure [None]
  - Pneumonia [None]
  - Pleural effusion [None]
  - General physical health deterioration [None]

NARRATIVE: CASE EVENT DATE: 20250529
